FAERS Safety Report 20365078 (Version 2)
Quarter: 2022Q1

REPORT INFORMATION
  Report Type: Spontaneous
  Country: PT (occurrence: PT)
  Receive Date: 20220122
  Receipt Date: 20220211
  Transmission Date: 20220423
  Serious: Yes (Hospitalization, Disabling, Other)
  Sender: FDA-Public Use
  Company Number: None

PATIENT
  Age: 81 Year
  Sex: Female

DRUGS (2)
  1. QUETIAPINE FUMARATE [Suspect]
     Active Substance: QUETIAPINE FUMARATE
     Indication: Psychotic disorder
     Dosage: UNK
     Route: 065
  2. HALOPERIDOL [Suspect]
     Active Substance: HALOPERIDOL
     Indication: Psychotic disorder
     Dosage: UNK
     Route: 065

REACTIONS (14)
  - Slow speech [Recovered/Resolved]
  - Musculoskeletal stiffness [Recovering/Resolving]
  - Hyperlactacidaemia [Recovered/Resolved]
  - Neuroleptic malignant syndrome [Recovering/Resolving]
  - Hyperthermia [Recovered/Resolved]
  - Muscle strength abnormal [Recovering/Resolving]
  - Bradykinesia [Recovered/Resolved]
  - Disorientation [Recovered/Resolved]
  - Tremor [Recovered/Resolved]
  - Rhabdomyolysis [Recovered/Resolved]
  - Hyperhidrosis [Recovered/Resolved]
  - Myopathy [Recovering/Resolving]
  - Nuchal rigidity [Recovered/Resolved]
  - Asthenia [Recovered/Resolved]
